FAERS Safety Report 22598802 (Version 1)
Quarter: 2023Q2

REPORT INFORMATION
  Report Type: Spontaneous
  Country: US (occurrence: US)
  Receive Date: 20230614
  Receipt Date: 20230614
  Transmission Date: 20230722
  Serious: Yes (Other)
  Sender: FDA-Public Use
  Company Number: US-COOPERSURGICAL, INC.-US-2023CPS001616

PATIENT
  Sex: Female
  Weight: 55.329 kg

DRUGS (2)
  1. PARAGARD T 380A [Suspect]
     Active Substance: COPPER
     Indication: Product used for unknown indication
     Dosage: UNK
     Route: 015
     Dates: start: 20160317, end: 20230510
  2. SPIRONOLACTONE [Concomitant]
     Active Substance: SPIRONOLACTONE
     Indication: Product used for unknown indication
     Dosage: 100 MILLIGRAM, QD
     Route: 048

REACTIONS (11)
  - Uterine polyp [Recovered/Resolved]
  - Device breakage [Recovered/Resolved]
  - Foreign body in reproductive tract [Recovered/Resolved]
  - Complication of device removal [Recovered/Resolved]
  - Uterine perforation [Unknown]
  - Embedded device [Recovered/Resolved]
  - Abnormal uterine bleeding [Unknown]
  - Procedural haemorrhage [Recovered/Resolved]
  - Device expulsion [Recovered/Resolved]
  - Intermenstrual bleeding [Unknown]
  - Pain [Unknown]

NARRATIVE: CASE EVENT DATE: 20230101
